FAERS Safety Report 6532365-9 (Version None)
Quarter: 2010Q1

REPORT INFORMATION
  Report Type: 
  Country: None (occurrence: None)
  Receive Date: 20100108
  Receipt Date: 20091230
  Transmission Date: 20100710
  Serious: Yes (Other)
  Sender: FDA-Public Use
  Company Number: US-PFIZER INC-2010000523

PATIENT
  Sex: Male
  Weight: 78.005 kg

DRUGS (7)
  1. XANAX [Suspect]
     Indication: PANIC ATTACK
     Dosage: 1 MG, 3X/DAY
     Dates: start: 19820101
  2. ZOLOFT [Suspect]
     Indication: PANIC ATTACK
     Dosage: DAILY
     Dates: start: 20091001
  3. TESTOSTERONE [Concomitant]
     Indication: HORMONE REPLACEMENT THERAPY
     Dosage: UNK
  4. LUNESTA [Concomitant]
     Dosage: 3 MG, 1X/DAY
  5. SPIRIVA [Concomitant]
     Dosage: UNK
  6. ADVAIR DISKUS 100/50 [Concomitant]
     Dosage: UNK
  7. NEXIUM [Concomitant]
     Dosage: UNK

REACTIONS (4)
  - DEPRESSION [None]
  - EMOTIONAL DISORDER [None]
  - FEELING ABNORMAL [None]
  - PANIC ATTACK [None]
